FAERS Safety Report 12538300 (Version 2)
Quarter: 2016Q3

REPORT INFORMATION
  Report Type: Spontaneous
  Country: BR (occurrence: BR)
  Receive Date: 20160707
  Receipt Date: 20160822
  Transmission Date: 20161109
  Serious: Yes (Other)
  Sender: FDA-Public Use
  Company Number: BR-ALLERGAN-1661990US

PATIENT
  Age: 54 Year
  Sex: Female

DRUGS (1)
  1. ZYPRED [Suspect]
     Active Substance: GATIFLOXACIN\PREDNISOLONE ACETATE
     Indication: CONJUNCTIVITIS VIRAL
     Dosage: 1 GTT, TID
     Route: 047
     Dates: start: 20160627

REACTIONS (2)
  - Respiratory failure [Not Recovered/Not Resolved]
  - Conjunctivitis viral [Not Recovered/Not Resolved]

NARRATIVE: CASE EVENT DATE: 20160627
